FAERS Safety Report 6093764-5 (Version None)
Quarter: 2009Q1

REPORT INFORMATION
  Report Type: 
  Country: None (occurrence: None)
  Receive Date: 20090226
  Receipt Date: 20090219
  Transmission Date: 20090719
  Serious: Yes (Other)
  Sender: FDA-Public Use
  Company Number: US-JNJCH-2009004930

PATIENT
  Age: 68 Year
  Sex: Male
  Weight: 106.6 kg

DRUGS (1)
  1. PURELL ORIGINAL [Suspect]
     Indication: ANTIBIOTIC PROPHYLAXIS
     Dosage: TEXT:ONCE DAILY AS DIRECTED
     Route: 061

REACTIONS (2)
  - OEDEMA PERIPHERAL [None]
  - OVERDOSE [None]
